FAERS Safety Report 25792914 (Version 2)
Quarter: 2025Q3

REPORT INFORMATION
  Report Type: Spontaneous
  Country: BR (occurrence: BR)
  Receive Date: 20250911
  Receipt Date: 20250916
  Transmission Date: 20251021
  Serious: Yes (Other)
  Sender: MYLAN
  Company Number: BR-MYLANLABS-2025M1076324

PATIENT
  Sex: Female

DRUGS (18)
  1. XALATAN [Suspect]
     Active Substance: LATANOPROST
     Indication: Glaucoma
     Dosage: 1 GTT DROPS, QD (ONCE DAILY)
     Route: 047
     Dates: start: 2025, end: 2025
  2. XALATAN [Suspect]
     Active Substance: LATANOPROST
     Dosage: 1 GTT DROPS, QD (ONCE DAILY)
     Dates: start: 2025, end: 2025
  3. XALATAN [Suspect]
     Active Substance: LATANOPROST
     Dosage: 1 GTT DROPS, QD (ONCE DAILY)
     Dates: start: 2025, end: 2025
  4. XALATAN [Suspect]
     Active Substance: LATANOPROST
     Dosage: 1 GTT DROPS, QD (ONCE DAILY)
     Route: 047
     Dates: start: 2025, end: 2025
  5. XALATAN [Suspect]
     Active Substance: LATANOPROST
     Dosage: 1 GTT DROP, QD (1 DROP EACH EYE ONCE A DAY)
     Route: 047
  6. XALATAN [Suspect]
     Active Substance: LATANOPROST
     Dosage: 1 GTT DROP, QD (1 DROP EACH EYE ONCE A DAY)
  7. XALATAN [Suspect]
     Active Substance: LATANOPROST
     Dosage: 1 GTT DROP, QD (1 DROP EACH EYE ONCE A DAY)
  8. XALATAN [Suspect]
     Active Substance: LATANOPROST
     Dosage: 1 GTT DROP, QD (1 DROP EACH EYE ONCE A DAY)
     Route: 047
  9. AMLODIPINE BESYLATE [Concomitant]
     Active Substance: AMLODIPINE BESYLATE
     Indication: Hypertension
     Dosage: UNK, QD (ONCE A DAY)
     Dates: start: 2024
  10. AMLODIPINE BESYLATE [Concomitant]
     Active Substance: AMLODIPINE BESYLATE
     Dosage: UNK, QD (ONCE A DAY)
     Route: 065
     Dates: start: 2024
  11. AMLODIPINE BESYLATE [Concomitant]
     Active Substance: AMLODIPINE BESYLATE
     Dosage: UNK, QD (ONCE A DAY)
     Route: 065
     Dates: start: 2024
  12. AMLODIPINE BESYLATE [Concomitant]
     Active Substance: AMLODIPINE BESYLATE
     Dosage: UNK, QD (ONCE A DAY)
     Dates: start: 2024
  13. BENICAR [Concomitant]
     Active Substance: OLMESARTAN MEDOXOMIL
     Indication: Hypertension
     Dosage: UNK, QD (ONCE A DAY)
     Route: 065
     Dates: start: 2024
  14. BENICAR [Concomitant]
     Active Substance: OLMESARTAN MEDOXOMIL
     Dosage: UNK, QD (ONCE A DAY)
     Dates: start: 2024
  15. Osteoform [Concomitant]
     Indication: Osteoporosis
     Dosage: UNK, QD (ONCE A DAY) (STARTED A FEW YEARS BEFORE)
  16. Osteoform [Concomitant]
     Dosage: UNK, QD (ONCE A DAY) (STARTED A FEW YEARS BEFORE)
     Route: 065
  17. Osteoform [Concomitant]
     Dosage: UNK, QD (ONCE A DAY) (STARTED A FEW YEARS BEFORE)
     Route: 065
  18. Osteoform [Concomitant]
     Dosage: UNK, QD (ONCE A DAY) (STARTED A FEW YEARS BEFORE)

REACTIONS (2)
  - Cataract [Unknown]
  - Ocular hyperaemia [Recovered/Resolved]

NARRATIVE: CASE EVENT DATE: 20250101
